FAERS Safety Report 7669648-5 (Version None)
Quarter: 2011Q3

REPORT INFORMATION
  Report Type: 
  Country: None (occurrence: None)
  Receive Date: 20110808
  Receipt Date: 20110803
  Transmission Date: 20111222
  Serious: Yes (Death)
  Sender: FDA-Public Use
  Company Number: PHHY2011JP70588

PATIENT
  Sex: Male

DRUGS (4)
  1. NORVASC [Concomitant]
     Dosage: 5 MG,
     Route: 048
     Dates: start: 20071113, end: 20110108
  2. VALSARTAN [Suspect]
     Dosage: 40 MG, QD
     Route: 048
     Dates: start: 20071113
  3. NORVASC [Concomitant]
     Indication: HYPERTENSION
     Dosage: 5 MG,
     Dates: start: 20071113
  4. LANSOPRAZOLE [Concomitant]
     Dosage: 15 MG,
     Route: 048
     Dates: start: 20071113

REACTIONS (1)
  - DEATH [None]
